FAERS Safety Report 15668837 (Version 3)
Quarter: 2019Q1

REPORT INFORMATION
  Report Type: Spontaneous
  Country: US (occurrence: US)
  Receive Date: 20181129
  Receipt Date: 20190125
  Transmission Date: 20190417
  Serious: Yes (Hospitalization)
  Sender: FDA-Public Use
  Company Number: US-BIOGEN-2018BI00664326

PATIENT
  Age: 7 Month
  Sex: Female

DRUGS (2)
  1. SPINRAZA [Suspect]
     Active Substance: NUSINERSEN
     Indication: SPINAL MUSCULAR ATROPHY
     Dosage: RECEIVED 12 MG, INTRATHECAL ON 19 NOV 2018 WHICH WAS THE MOST RECENT ADMIN PRIOR TO EVENT
     Route: 065
     Dates: start: 20180720
  2. SPINRAZA [Suspect]
     Active Substance: NUSINERSEN
     Dosage: RECEIVED 12 MG ON 19 NOV 2018 WHICH WAS THE MOST RECENT ADMIN PRIOR TO EVENT
     Route: 065
     Dates: start: 20180920

REACTIONS (3)
  - Pneumonia aspiration [Recovered/Resolved]
  - Lower respiratory tract infection viral [Recovered/Resolved]
  - Acute respiratory failure [Unknown]

NARRATIVE: CASE EVENT DATE: 20181120
